FAERS Safety Report 4673132-0 (Version None)
Quarter: 2005Q2

REPORT INFORMATION
  Report Type: 
  Country: None (occurrence: None)
  Receive Date: 20050525
  Receipt Date: 20050513
  Transmission Date: 20051028
  Serious: Yes (Death)
  Sender: FDA-Public Use
  Company Number: M-780130

PATIENT
  Age: 35 Year
  Sex: Female

DRUGS (5)
  1. HALDOL [Suspect]
     Route: 049
     Dates: start: 19780705
  2. BENZTROPINE MESYLATE [Concomitant]
  3. DIPHENHYDRAMINE HCL [Concomitant]
  4. CHLORPROMAZINE [Concomitant]
  5. CHLORPROMAZINE [Concomitant]

REACTIONS (2)
  - DYSTONIA [None]
  - SUDDEN DEATH [None]
